FAERS Safety Report 6866601-6 (Version None)
Quarter: 2010Q2

REPORT INFORMATION
  Report Type: 
  Country: None (occurrence: None)
  Receive Date: 20100603
  Receipt Date: 20100314
  Transmission Date: 20101027
  Serious: Yes (Disabling)
  Sender: FDA-Public Use
  Company Number: US-SEPTODONT-201000085

PATIENT
  Age: 34 Year
  Sex: Female
  Weight: 60.8 kg

DRUGS (1)
  1. SEPTOCAINE [Suspect]
     Indication: LOCAL ANAESTHESIA
     Dosage: GIVEN SEVERAL SHOTS IN MOUTH, 6 SHOTS DENTAL
     Route: 004
     Dates: start: 20090423

REACTIONS (1)
  - HYPOAESTHESIA [None]
